FAERS Safety Report 8950541 (Version 1)
Quarter: 2012Q4

REPORT INFORMATION
  Report Type: Spontaneous
  Country: US (occurrence: None)
  Receive Date: 20121204
  Receipt Date: 20121204
  Transmission Date: 20130627
  Serious: No
  Sender: FDA-Public Use
  Company Number: None

PATIENT
  Age: 49 Year
  Sex: Male
  Weight: 108.2 kg

DRUGS (1)
  1. VERAPAMIL [Suspect]
     Indication: HYPERTENSION
     Dosage: 180 MG EVERY DAY PO
     Route: 048
     Dates: start: 20120703, end: 20120707

REACTIONS (5)
  - Paraesthesia [None]
  - Asthenia [None]
  - Paraesthesia [None]
  - Hypertension [None]
  - Chest pain [None]
